FAERS Safety Report 11587782 (Version 2)
Quarter: 2016Q1

REPORT INFORMATION
  Report Type: Report from Study
  Country: CN (occurrence: CN)
  Receive Date: 20151001
  Receipt Date: 20160212
  Transmission Date: 20160525
  Serious: Yes (Hospitalization)
  Sender: FDA-Public Use
  Company Number: CN-ASTRAZENECA-2015SE92850

PATIENT
  Age: 23944 Day
  Sex: Female

DRUGS (9)
  1. VANDETANIB. [Suspect]
     Active Substance: VANDETANIB
     Indication: PAPILLARY THYROID CANCER
     Route: 048
     Dates: start: 20140717, end: 20141007
  2. PANTOPRAZOLE [Concomitant]
     Active Substance: PANTOPRAZOLE SODIUM
     Indication: ABDOMINAL PAIN UPPER
     Route: 048
  3. VITAMIN C [Concomitant]
     Active Substance: ASCORBIC ACID
     Indication: VITAMIN SUPPLEMENTATION
     Route: 048
     Dates: start: 20140622
  4. VANDETANIB. [Suspect]
     Active Substance: VANDETANIB
     Indication: PAPILLARY THYROID CANCER
     Route: 048
     Dates: start: 20141030, end: 20150623
  5. LETROX [Concomitant]
     Indication: HYPOTHYROIDISM
     Route: 048
  6. VANDETANIB. [Suspect]
     Active Substance: VANDETANIB
     Indication: PAPILLARY THYROID CANCER
     Route: 048
     Dates: start: 20150729
  7. TETRACYCLINE [Concomitant]
     Active Substance: TETRACYCLINE
     Indication: CHEST PAIN
     Route: 003
     Dates: start: 20140723
  8. TETRACYCLINE [Concomitant]
     Active Substance: TETRACYCLINE
     Indication: PRURITUS
     Route: 003
     Dates: start: 20140723
  9. VITAMIN E [Concomitant]
     Active Substance: .ALPHA.-TOCOPHEROL
     Indication: VITAMIN SUPPLEMENTATION
     Route: 048
     Dates: start: 20140622

REACTIONS (1)
  - Post procedural infection [Recovering/Resolving]

NARRATIVE: CASE EVENT DATE: 20150731
